FAERS Safety Report 9696382 (Version 1)
Quarter: 2013Q4

REPORT INFORMATION
  Report Type: Spontaneous
  Country: US (occurrence: US)
  Receive Date: 20131119
  Receipt Date: 20131119
  Transmission Date: 20140711
  Serious: No
  Sender: FDA-Public Use
  Company Number: US-TEVA-445060USA

PATIENT
  Age: 51 Year
  Sex: Female
  Weight: 74.91 kg

DRUGS (5)
  1. PARAGARD 380A [Suspect]
     Indication: CONTRACEPTION
     Route: 015
     Dates: start: 20131024
  2. HYZAAR [Concomitant]
     Indication: HYPERTENSION
  3. ZYRTEC [Concomitant]
     Indication: SEASONAL ALLERGY
  4. VITAMIN D [Concomitant]
     Indication: SUPPLEMENTATION THERAPY
  5. NEXIUM [Concomitant]
     Indication: DYSPEPSIA

REACTIONS (2)
  - Menorrhagia [Not Recovered/Not Resolved]
  - Menorrhagia [Not Recovered/Not Resolved]
